FAERS Safety Report 14568251 (Version 1)
Quarter: 2018Q1

REPORT INFORMATION
  Report Type: Spontaneous
  Country: US (occurrence: US)
  Receive Date: 20180223
  Receipt Date: 20180223
  Transmission Date: 20180509
  Serious: Yes (Death, Hospitalization, Other)
  Sender: FDA-Public Use
  Company Number: US-VIIV HEALTHCARE LIMITED-US2018030351

PATIENT
  Sex: Male

DRUGS (1)
  1. TRIUMEQ [Suspect]
     Active Substance: ABACAVIR SULFATE\DOLUTEGRAVIR SODIUM\LAMIVUDINE
     Indication: HIV INFECTION
     Route: 048

REACTIONS (11)
  - Hypotension [Fatal]
  - Psychotic disorder [Fatal]
  - Transfusion [Fatal]
  - Cerebral haematoma [Fatal]
  - Fall [Not Recovered/Not Resolved]
  - Injury [Fatal]
  - Fracture treatment [Recovered/Resolved]
  - Failure to thrive [Fatal]
  - Fracture [Unknown]
  - Mechanical ventilation [Fatal]
  - Drug dose omission [Unknown]
